FAERS Safety Report 24592824 (Version 3)
Quarter: 2025Q3

REPORT INFORMATION
  Report Type: Spontaneous
  Country: US (occurrence: US)
  Receive Date: 20241108
  Receipt Date: 20250911
  Transmission Date: 20251020
  Serious: Yes (Life-Threatening, Disabling, Other)
  Sender: CHATTEM
  Company Number: US-OPELLA-2024OHG037452

PATIENT
  Sex: Male

DRUGS (3)
  1. GOLD BOND ORIGINAL STRENGTH [Suspect]
     Active Substance: MENTHOL
     Indication: Product used for unknown indication
  2. NICODERM CQ [Suspect]
     Active Substance: NICOTINE
     Indication: Tobacco use disorder
     Dosage: LACE 1 PATCH ONTO THE SKIN DAILY
     Route: 061
  3. NICODERM CQ [Suspect]
     Active Substance: NICOTINE
     Dosage: LACE 1 PATCH ONTO THE SKIN DAILY
     Route: 061

REACTIONS (3)
  - Pleural mesothelioma malignant [Unknown]
  - Exposure to chemical pollution [Unknown]
  - Occupational exposure to toxic agent [Unknown]

NARRATIVE: CASE EVENT DATE: 20240710
